FAERS Safety Report 5533900-X (Version None)
Quarter: 2007Q4

REPORT INFORMATION
  Report Type: 
  Country: None (occurrence: None)
  Receive Date: 20071129
  Receipt Date: 20071123
  Transmission Date: 20080405
  Serious: Yes (Hospitalization)
  Sender: FDA-Public Use
  Company Number: 77065

PATIENT
  Age: 55 Year
  Sex: Male

DRUGS (3)
  1. TERBINAFINE HYDROCHLORIDE [Suspect]
     Indication: ONYCHOMYCOSIS
     Dosage: 250 MG
     Route: 048
     Dates: start: 20070524
  2. CO-AMOXICLAV (AMOXYCILLIN, POTASSIUM CLAVULANATE) [Concomitant]
  3. SALBUTAMOL (SALBUTAMOL) [Concomitant]

REACTIONS (1)
  - CONGESTIVE CARDIOMYOPATHY [None]
